FAERS Safety Report 18756684 (Version 1)
Quarter: 2021Q1

REPORT INFORMATION
  Report Type: Spontaneous
  Country: GB (occurrence: GB)
  Receive Date: 20210119
  Receipt Date: 20210119
  Transmission Date: 20210419
  Serious: Yes (Other)
  Sender: FDA-Public Use
  Company Number: GB-MYLANLABS-2021M1002699

PATIENT
  Age: 36 Year
  Sex: Male

DRUGS (1)
  1. METRONIDAZOLE. [Suspect]
     Active Substance: METRONIDAZOLE
     Indication: ANAL FISTULA
     Dosage: 400 MILLIGRAM, THREE TIMES A DAY
     Route: 065

REACTIONS (2)
  - Optic neuropathy [Recovered/Resolved]
  - Off label use [Unknown]
